FAERS Safety Report 24312930 (Version 2)
Quarter: 2025Q2

REPORT INFORMATION
  Report Type: Report from Study
  Country: US (occurrence: US)
  Receive Date: 20240912
  Receipt Date: 20250627
  Transmission Date: 20250716
  Serious: No
  Sender: MERCK SHARP & DOHME LLC
  Company Number: US-009507513-2409USA001114

PATIENT
  Age: 74 Year
  Sex: Female

DRUGS (1)
  1. JANUMET [Suspect]
     Active Substance: METFORMIN HYDROCHLORIDE\SITAGLIPTIN PHOSPHATE
     Dosage: DOSE DESCRIPTION : 1 TAB QD?DAILY DOSE : 1 DOSAGE FORM?CONCENTRATION: 50/1000 MILLIGRAM
     Route: 048
     Dates: end: 20240819

REACTIONS (4)
  - Blood glucose fluctuation [Unknown]
  - Inappropriate schedule of product administration [Unknown]
  - Product use issue [Unknown]
  - Product dose omission issue [Unknown]

NARRATIVE: CASE EVENT DATE: 20240820
